FAERS Safety Report 14487510 (Version 1)
Quarter: 2018Q1

REPORT INFORMATION
  Report Type: Spontaneous
  Country: ZA (occurrence: ZA)
  Receive Date: 20180205
  Receipt Date: 20180205
  Transmission Date: 20180509
  Serious: Yes (Disabling)
  Sender: FDA-Public Use
  Company Number: ZA-SA-2018SA019026

PATIENT
  Age: 49 Year
  Sex: Female

DRUGS (4)
  1. PREDNISONE. [Suspect]
     Active Substance: PREDNISONE
     Route: 065
  2. SALAZOPYRIN [Suspect]
     Active Substance: SULFASALAZINE
     Route: 065
     Dates: start: 201411
  3. METHOTREXATE. [Suspect]
     Active Substance: METHOTREXATE
     Route: 065
     Dates: start: 201411, end: 201505
  4. CHLOROQUINE. [Suspect]
     Active Substance: CHLOROQUINE
     Route: 065
     Dates: start: 201303, end: 201401

REACTIONS (7)
  - Fatigue [Unknown]
  - Arthralgia [Unknown]
  - Unevaluable event [Unknown]
  - Gait disturbance [Unknown]
  - Rash [Unknown]
  - Mouth ulceration [Unknown]
  - Hepatitis [Unknown]
